FAERS Safety Report 7979538-6 (Version None)
Quarter: 2011Q4

REPORT INFORMATION
  Report Type: 
  Country: None (occurrence: None)
  Receive Date: 20111214
  Receipt Date: 20111205
  Transmission Date: 20120403
  Serious: Yes (Hospitalization)
  Sender: FDA-Public Use
  Company Number: FR-EISAI INC-E2090-01888-SPO-FR

PATIENT
  Sex: Female

DRUGS (9)
  1. URBANYL [Concomitant]
  2. PREDNISOLONE [Concomitant]
  3. ACTONEL [Concomitant]
  4. ZONEGRAN [Suspect]
     Dosage: 100 MG DAILY
     Route: 048
     Dates: start: 20090731, end: 20090815
  5. PHENOBARBITAL TAB [Concomitant]
  6. ZONEGRAN [Suspect]
     Indication: EPILEPSY
     Dosage: 200 MG DAILY
     Route: 048
     Dates: start: 20080101, end: 20090607
  7. OSTRAM [Concomitant]
  8. ZONEGRAN [Suspect]
     Dosage: 250 MG DAILY
     Route: 048
     Dates: start: 20090608, end: 20090730
  9. CLONAZEPAM [Concomitant]

REACTIONS (1)
  - CUTANEOUS LUPUS ERYTHEMATOSUS [None]
